FAERS Safety Report 4439733-X (Version None)
Quarter: 2004Q3

REPORT INFORMATION
  Report Type: 
  Country: None (occurrence: None)
  Receive Date: 20040901
  Receipt Date: 20040901
  Transmission Date: 20050211
  Serious: Yes (Other)
  Sender: FDA-Public Use
  Company Number: None

PATIENT
  Age: 21 Year
  Sex: Male
  Weight: 78.92 kg

DRUGS (17)
  1. SEROQUEL [Suspect]
     Dosage: 25 MG TWICE A DA ORAL
     Route: 048
     Dates: start: 20040830, end: 20040830
  2. SEROQUEL [Suspect]
     Indication: ALCOHOL WITHDRAWAL SYNDROME
     Dosage: 100 MG BEDTIME ORAL
     Route: 048
     Dates: start: 20040830, end: 20040830
  3. CYCLOBENZAPRINE HCL [Concomitant]
  4. OLANZAPINE [Concomitant]
  5. BENZTROPINE MESYLATE [Concomitant]
  6. CHLORDIAZEPOXIDE [Concomitant]
  7. DIAZEPAM [Concomitant]
  8. HALOPERIDOL LACTATE [Concomitant]
  9. TRAZODONE HCL [Concomitant]
  10. TRIMETHOBENZAMIDE [Concomitant]
  11. FOLIC ACID [Concomitant]
  12. PANTOPRAZOLE [Concomitant]
  13. THIAMINE [Concomitant]
  14. ACETAMINOPHEN [Concomitant]
  15. MAALOX PLUS [Concomitant]
  16. IMODIUM [Concomitant]
  17. MAGNESIUM HYDROXIDE TAB [Concomitant]

REACTIONS (4)
  - DIZZINESS [None]
  - HEADACHE [None]
  - NAUSEA [None]
  - PHOTOSENSITIVITY REACTION [None]
